FAERS Safety Report 5313429-4 (Version None)
Quarter: 2007Q2

REPORT INFORMATION
  Report Type: 
  Country: None (occurrence: None)
  Receive Date: 20070501
  Receipt Date: 20070426
  Transmission Date: 20071010
  Serious: Yes (Hospitalization)
  Sender: FDA-Public Use
  Company Number: AUWYE636413FEB07

PATIENT
  Sex: Male

DRUGS (1)
  1. EFFEXOR XR [Suspect]
     Indication: DEPRESSION
     Route: 048
     Dates: start: 20061123, end: 20070213

REACTIONS (5)
  - BLOOD CREATININE INCREASED [None]
  - FEELING JITTERY [None]
  - HEADACHE [None]
  - RENAL IMPAIRMENT [None]
  - VOMITING [None]
